FAERS Safety Report 23776908 (Version 1)
Quarter: 2024Q2

REPORT INFORMATION
  Report Type: Spontaneous
  Country: FR (occurrence: FR)
  Receive Date: 20240424
  Receipt Date: 20240424
  Transmission Date: 20240716
  Serious: Yes (Hospitalization)
  Sender: FDA-Public Use
  Company Number: FR-SUNPHARMA-2024RR-443300AA

PATIENT
  Age: 22 Year
  Sex: Male
  Weight: 117 kg

DRUGS (2)
  1. TILDRAKIZUMAB [Suspect]
     Active Substance: TILDRAKIZUMAB
     Indication: Psoriasis
     Dosage: 1 DOSAGE FORM (100 MG
     Route: 058
     Dates: start: 20231204, end: 20231204
  2. METHOTREXATE [Concomitant]
     Active Substance: METHOTREXATE
     Indication: Psoriasis
     Dosage: 15 MILLIGRAM, WEEKLY
     Route: 048
     Dates: start: 20231108, end: 20231115

REACTIONS (1)
  - Myopericarditis [Not Recovered/Not Resolved]

NARRATIVE: CASE EVENT DATE: 20240311
